FAERS Safety Report 19724444 (Version 1)
Quarter: 2021Q3

REPORT INFORMATION
  Report Type: Other
  Country: IT (occurrence: IT)
  Receive Date: 20210819
  Receipt Date: 20210819
  Transmission Date: 20211014
  Serious: Yes (Other)
  Sender: FDA-Public Use
  Company Number: IT-ROCHE-2890531

PATIENT

DRUGS (1)
  1. OCRELIZUMAB. [Suspect]
     Active Substance: OCRELIZUMAB
     Indication: MULTIPLE SCLEROSIS
     Dosage: TWO 300 MG IV INFUSIONS TWO WEEKS APART, FOLLOWED BY 600 MG EVERY SIX MONTHS OR EVERY 24 WEEKS.
     Route: 042

REACTIONS (13)
  - Skin papilloma [Unknown]
  - Myocardial ischaemia [Unknown]
  - Varicella zoster virus infection [Unknown]
  - Alopecia universalis [Unknown]
  - Viral pericarditis [Unknown]
  - Infusion related reaction [Unknown]
  - Urinary tract infection [Unknown]
  - Respiratory tract infection [Unknown]
  - Herpes simplex [Unknown]
  - Tendon rupture [Unknown]
  - Blood glucose increased [Unknown]
  - Myocardial infarction [Unknown]
  - Infection [Unknown]
